FAERS Safety Report 5910006-9 (Version None)
Quarter: 2008Q4

REPORT INFORMATION
  Report Type: 
  Country: None (occurrence: None)
  Receive Date: 20081007
  Receipt Date: 20080930
  Transmission Date: 20090506
  Serious: Yes (Other)
  Sender: FDA-Public Use
  Company Number: US-BAYER-200822986NA

PATIENT
  Sex: Female

DRUGS (7)
  1. AVELOX [Suspect]
     Indication: INFECTION
     Route: 048
     Dates: start: 20080510
  2. LEXAPRO [Concomitant]
     Dosage: TOTAL DAILY DOSE: 20 MG
  3. INSULIN [Concomitant]
  4. HYDROCHLOROTHIAZIDE [Concomitant]
     Dosage: TOTAL DAILY DOSE: 12.5 MG
  5. ALLEGRA [Concomitant]
     Dosage: TOTAL DAILY DOSE: 180 MG
  6. METFORMIN HCL [Concomitant]
     Dosage: TOTAL DAILY DOSE: 1000 MG
  7. PROVIGIL [Concomitant]
     Dosage: TOTAL DAILY DOSE: 200 MG

REACTIONS (21)
  - ANAPHYLACTIC REACTION [None]
  - APHASIA [None]
  - APHONIA [None]
  - AURICULAR SWELLING [None]
  - BLOOD PRESSURE INCREASED [None]
  - COUGH [None]
  - DYSPNOEA [None]
  - ERYTHEMA [None]
  - EYE SWELLING [None]
  - FEELING ABNORMAL [None]
  - FLUSHING [None]
  - HEART RATE INCREASED [None]
  - OCULAR HYPERAEMIA [None]
  - OEDEMA PERIPHERAL [None]
  - OXYGEN SATURATION DECREASED [None]
  - PRURITUS [None]
  - RASH MACULAR [None]
  - SWELLING FACE [None]
  - THROAT TIGHTNESS [None]
  - URTICARIA [None]
  - WHEEZING [None]
